FAERS Safety Report 9251141 (Version 3)
Quarter: 2013Q4

REPORT INFORMATION
  Report Type: Spontaneous
  Country: US (occurrence: US)
  Receive Date: 20130424
  Receipt Date: 20131015
  Transmission Date: 20140711
  Serious: Yes (Disabling)
  Sender: FDA-Public Use
  Company Number: US-ASTRAZENECA-2013SE27476

PATIENT
  Age: 39 Year
  Sex: Female
  Weight: 47.6 kg

DRUGS (9)
  1. NEXIUM [Suspect]
     Indication: ULCER
     Dosage: ONCE DAILY
     Route: 048
  2. NEXIUM [Suspect]
     Indication: ULCER
     Route: 048
     Dates: start: 20011213
  3. NEXIUM [Suspect]
     Indication: ULCER
     Route: 048
     Dates: start: 2009, end: 2013
  4. ERYTHROMYCIN [Concomitant]
  5. BETHANEACHOL [Concomitant]
  6. CLONAZEPAM [Concomitant]
     Dates: start: 20001219
  7. DEPAKOTE [Concomitant]
     Dates: start: 20010904
  8. TRILEPTAL [Concomitant]
     Dates: start: 20020514
  9. PREDNISONE [Concomitant]
     Dates: start: 20090519

REACTIONS (14)
  - Undifferentiated connective tissue disease [Unknown]
  - Bipolar disorder [Unknown]
  - Osteoporosis [Unknown]
  - Systemic lupus erythematosus [Unknown]
  - Bone density decreased [Unknown]
  - Bone disorder [Unknown]
  - Foot fracture [Unknown]
  - Rheumatoid arthritis [Unknown]
  - Gastric disorder [Unknown]
  - Irritable bowel syndrome [Unknown]
  - Impaired gastric emptying [Unknown]
  - Osteopenia [Unknown]
  - Haemoptysis [Unknown]
  - Fall [Unknown]
